FAERS Safety Report 5757854-6 (Version None)
Quarter: 2008Q2

REPORT INFORMATION
  Report Type: 
  Country: None (occurrence: None)
  Receive Date: 20080603
  Receipt Date: 20080529
  Transmission Date: 20081010
  Serious: Yes (Life-Threatening, Hospitalization)
  Sender: FDA-Public Use
  Company Number: PHHY2008MX08520

PATIENT
  Age: 55 Year
  Sex: Male

DRUGS (6)
  1. ZELMAC [Suspect]
     Indication: IRRITABLE BOWEL SYNDROME
     Dosage: 6 MG, BID
     Route: 048
     Dates: start: 20080430, end: 20080504
  2. COMBIVENT [Concomitant]
     Indication: ASTHMA
  3. ENALAPRIL MALEATE [Concomitant]
     Indication: HYPERTENSION
  4. ALBUTEROL [Concomitant]
  5. IPRATROPIUM BROMIDE [Concomitant]
  6. ALCOHOL [Concomitant]

REACTIONS (3)
  - CATHETER PLACEMENT [None]
  - MYOCARDIAL INFARCTION [None]
  - STENT PLACEMENT [None]
